APPROVED DRUG PRODUCT: RESERPINE
Active Ingredient: RESERPINE
Strength: 0.25MG
Dosage Form/Route: TABLET;ORAL
Application: N010441 | Product #002
Applicant: EVERYLIFE
Approved: Approved Prior to Jan 1, 1982 | RLD: No | RS: No | Type: DISCN